FAERS Safety Report 8819879 (Version 1)
Quarter: 2012Q4

REPORT INFORMATION
  Report Type: 
  Country: US (occurrence: US)
  Receive Date: 20121001
  Receipt Date: 20121001
  Transmission Date: 20130627
  Serious: No
  Sender: FDA-Public Use
  Company Number: US-ASTRAZENECA-2012SE73918

PATIENT
  Sex: Male

DRUGS (4)
  1. PULMICORT FLEXHALER [Suspect]
     Indication: ASTHMA
     Route: 055
  2. SEREVENT [Concomitant]
  3. SPIRIVA [Concomitant]
  4. XOLAIR [Concomitant]

REACTIONS (3)
  - Asthma [Recovering/Resolving]
  - Activities of daily living impaired [Unknown]
  - Drug ineffective [Unknown]
